FAERS Safety Report 25202839 (Version 1)
Quarter: 2025Q2

REPORT INFORMATION
  Report Type: Spontaneous
  Country: JP (occurrence: JP)
  Receive Date: 20250416
  Receipt Date: 20250416
  Transmission Date: 20250716
  Serious: Yes (Death)
  Sender: MERCK SHARP AND DOHME
  Company Number: JP-009507513-2276520

PATIENT
  Age: 82 Year
  Sex: Male

DRUGS (3)
  1. KEYTRUDA [Suspect]
     Active Substance: PEMBROLIZUMAB
     Indication: Bile duct cancer stage IV
     Dosage: 200MG ONCE EVERY 3 WEEKS, 3 CYCLES
     Route: 041
     Dates: start: 20250131, end: 202503
  2. GEMCITABINE [Concomitant]
     Active Substance: GEMCITABINE
     Indication: Bile duct cancer stage IV
     Dosage: 1000MG/M2 ONCE EVERY 3 WEEKS (DAY1.5/C)
     Route: 041
     Dates: start: 20250131, end: 202503
  3. CISPLATIN [Concomitant]
     Active Substance: CISPLATIN
     Indication: Bile duct cancer stage IV
     Dosage: 25/M2 ONCE EVERY 3 WEEKS (DAY1.5/C)?IT WAS ALSO REPORTED AS DUE TO LOW RENAL FUNCTION, CISPLATIN ...
     Route: 041
     Dates: start: 20250131, end: 202503

REACTIONS (3)
  - Interstitial lung disease [Fatal]
  - Condition aggravated [Unknown]
  - Vascular access complication [Unknown]

NARRATIVE: CASE EVENT DATE: 20250101
